FAERS Safety Report 6880020-8 (Version None)
Quarter: 2010Q3

REPORT INFORMATION
  Report Type: 
  Country: None (occurrence: None)
  Receive Date: 20100728
  Receipt Date: 20100723
  Transmission Date: 20110219
  Serious: Yes (Death, Other)
  Sender: FDA-Public Use
  Company Number: PHFR2010GB01407

PATIENT
  Age: 59 Year
  Sex: Male

DRUGS (2)
  1. CLOZAPINE [Suspect]
     Dosage: UNK
     Dates: start: 20030223, end: 20090625
  2. ZAPONEX [Suspect]
     Dosage: 600MG
     Route: 048
     Dates: start: 20090626

REACTIONS (2)
  - CIRCULATORY COLLAPSE [None]
  - NON-SMALL CELL LUNG CANCER METASTATIC [None]
